FAERS Safety Report 8539567-0 (Version None)
Quarter: 2012Q3

REPORT INFORMATION
  Report Type: 
  Country: None (occurrence: None)
  Receive Date: 20120726
  Receipt Date: 20120713
  Transmission Date: 20120928
  Serious: Yes (Other)
  Sender: FDA-Public Use
  Company Number: US-ELI_LILLY_AND_COMPANY-US201207004713

PATIENT
  Age: 64 Year
  Sex: Female

DRUGS (4)
  1. HUMULIN 70/30 [Suspect]
     Dosage: 30 U, EACH EVENING
     Dates: end: 20120701
  2. HUMULIN 70/30 [Suspect]
     Dosage: 30 U, EACH EVENING
     Dates: start: 20120701
  3. HUMULIN 70/30 [Suspect]
     Indication: DIABETES MELLITUS
     Dosage: 55 U, EACH MORNING
     Dates: end: 20120701
  4. HUMULIN 70/30 [Suspect]
     Dosage: 55 U, EACH MORNING
     Dates: start: 20120701

REACTIONS (1)
  - BLINDNESS [None]
